APPROVED DRUG PRODUCT: AMOXICILLIN
Active Ingredient: AMOXICILLIN
Strength: 400MG
Dosage Form/Route: TABLET, FOR SUSPENSION;ORAL
Application: A065324 | Product #002
Applicant: AUROBINDO PHARMA LTD
Approved: Jan 17, 2007 | RLD: No | RS: No | Type: DISCN